FAERS Safety Report 4619881-1 (Version None)
Quarter: 2005Q1

REPORT INFORMATION
  Report Type: 
  Country: None (occurrence: None)
  Receive Date: 20050321
  Receipt Date: 20050321
  Transmission Date: 20050727
  Serious: No
  Sender: FDA-Public Use
  Company Number: None

PATIENT
  Age: 23 Year
  Sex: Male

DRUGS (2)
  1. PENICILLIN V POTASSIUM [Suspect]
  2. BETA-LACTAM ANTIMICROBIALS [Suspect]

REACTIONS (2)
  - PRURITUS [None]
  - VISION BLURRED [None]
